FAERS Safety Report 9754388 (Version 2)
Quarter: 2013Q4

REPORT INFORMATION
  Report Type: Spontaneous
  Country: TR (occurrence: TR)
  Receive Date: 20131213
  Receipt Date: 20131230
  Transmission Date: 20140711
  Serious: Yes (Hospitalization, Other)
  Sender: FDA-Public Use
  Company Number: TR-ABBVIE-13P-161-1178871-00

PATIENT
  Sex: Male

DRUGS (3)
  1. CLARITHROMYCIN [Suspect]
     Indication: GASTRITIS
  2. CARBAMAZEPINE [Interacting]
     Indication: EPILEPSY
  3. PROTONPUMP INHIBITOR [Concomitant]
     Indication: GASTRITIS

REACTIONS (4)
  - Lethargy [Recovered/Resolved]
  - Toxicity to various agents [Recovered/Resolved]
  - Drug interaction [Recovered/Resolved]
  - Convulsion [Recovered/Resolved]
